FAERS Safety Report 22764892 (Version 2)
Quarter: 2024Q3

REPORT INFORMATION
  Report Type: Other
  Country: FR (occurrence: FR)
  Receive Date: 20230731
  Receipt Date: 20240702
  Transmission Date: 20241016
  Serious: Yes (Death)
  Sender: TOLMAR
  Company Number: FR-TOLMAR, INC.-23FR042146

PATIENT
  Age: 78 Year
  Sex: Male
  Weight: 92 kg

DRUGS (4)
  1. ELIGARD [Suspect]
     Active Substance: LEUPROLIDE ACETATE
     Indication: Prostate cancer recurrent
     Dosage: 22.5 MILLIGRAM, Q 3 MONTH
     Dates: start: 20211210
  2. ELIGARD [Suspect]
     Active Substance: LEUPROLIDE ACETATE
     Indication: Prostate cancer recurrent
     Dosage: UNK
  3. KARDEGIC [Concomitant]
     Active Substance: ASPIRIN DL-LYSINE
     Indication: Product used for unknown indication
  4. RADIATION THERAPY [Concomitant]
     Active Substance: RADIATION THERAPY
     Indication: Product used for unknown indication
     Dosage: UNK

REACTIONS (1)
  - Death [Fatal]
